FAERS Safety Report 9521148 (Version 2)
Quarter: 2013Q3

REPORT INFORMATION
  Report Type: Report from Study
  Country: CO (occurrence: CO)
  Receive Date: 20130913
  Receipt Date: 20130918
  Transmission Date: 20140515
  Serious: Yes (Hospitalization)
  Sender: FDA-Public Use
  Company Number: CO-ROCHE-1274010

PATIENT
  Age: 84 Year
  Sex: Female
  Weight: 56 kg

DRUGS (1)
  1. LUCENTIS [Suspect]
     Indication: MACULAR DEGENERATION
     Route: 050
     Dates: start: 20130621

REACTIONS (4)
  - Blood pressure inadequately controlled [Unknown]
  - Diabetes mellitus inadequate control [Unknown]
  - Renal failure [Not Recovered/Not Resolved]
  - Renal disorder [Unknown]
